FAERS Safety Report 5969041-7 (Version None)
Quarter: 2008Q4

REPORT INFORMATION
  Report Type: 
  Country: None (occurrence: None)
  Receive Date: 20081126
  Receipt Date: 20081119
  Transmission Date: 20090506
  Serious: Yes (Death, Life-Threatening, Hospitalization)
  Sender: FDA-Public Use
  Company Number: JP-WYE-H00472307

PATIENT
  Sex: Male

DRUGS (10)
  1. ANCARON [Suspect]
     Indication: VENTRICULAR FIBRILLATION
     Route: 048
     Dates: start: 20070727, end: 20070802
  2. ANCARON [Suspect]
     Route: 048
     Dates: start: 20070803, end: 20070915
  3. ALDACTONE [Concomitant]
     Indication: HYPOKALAEMIA
     Route: 048
     Dates: end: 20071029
  4. ALOSITOL [Concomitant]
     Indication: HYPERURICAEMIA
     Route: 048
     Dates: end: 20071029
  5. WARFARIN SODIUM [Concomitant]
     Indication: ATRIAL FIBRILLATION
     Route: 048
     Dates: end: 20071005
  6. LEVOTHYROXINE SODIUM [Concomitant]
     Indication: HYPOTHYROIDISM
     Route: 048
     Dates: end: 20071029
  7. ARTIST [Concomitant]
     Indication: CARDIAC FAILURE CHRONIC
     Dosage: UNKNOWN
     Route: 048
     Dates: start: 20070817, end: 20071029
  8. LASIX [Concomitant]
     Indication: CARDIAC FAILURE CONGESTIVE
     Route: 048
     Dates: end: 20071029
  9. ACETYLSALICYLIC ACID SRT [Concomitant]
     Indication: MYOCARDIAL ISCHAEMIA
     Route: 048
     Dates: start: 20070727, end: 20070817
  10. NATRIX [Concomitant]
     Indication: CARDIAC FAILURE CONGESTIVE
     Route: 048
     Dates: end: 20071029

REACTIONS (3)
  - ANOREXIA [None]
  - PNEUMONIA ASPIRATION [None]
  - PULMONARY ALVEOLAR HAEMORRHAGE [None]
